FAERS Safety Report 18014233 (Version 1)
Quarter: 2020Q3

REPORT INFORMATION
  Report Type: Spontaneous
  Country: US (occurrence: US)
  Receive Date: 20200713
  Receipt Date: 20200713
  Transmission Date: 20201103
  Serious: No
  Sender: FDA-Public Use
  Company Number: None

PATIENT
  Age: 48 Year
  Sex: Female
  Weight: 85 kg

DRUGS (1)
  1. REMDESIVIR (EUA) (REMDESIVIR (EUA)) [Suspect]
     Active Substance: REMDESIVIR
     Indication: COVID-19
     Dosage: FREQUENCY: AM
     Route: 042
     Dates: start: 20200609, end: 20200609

REACTIONS (9)
  - Chills [None]
  - Vomiting [None]
  - Dizziness [None]
  - Presyncope [None]
  - Sinus tachycardia [None]
  - Asthenia [None]
  - Diarrhoea [None]
  - Unresponsive to stimuli [None]
  - Fatigue [None]

NARRATIVE: CASE EVENT DATE: 20200609
